FAERS Safety Report 9468242 (Version 1)
Quarter: 2013Q3

REPORT INFORMATION
  Report Type: Spontaneous
  Country: GB (occurrence: GB)
  Receive Date: 20130821
  Receipt Date: 20130821
  Transmission Date: 20140515
  Serious: Yes (Disabling)
  Sender: FDA-Public Use
  Company Number: GB-MYLANLABS-2013S1017713

PATIENT
  Age: 63 Year
  Sex: Female
  Weight: 64 kg

DRUGS (9)
  1. FEXOFENADINE [Suspect]
     Indication: ANGIOEDEMA
     Route: 048
     Dates: start: 20130603, end: 20130605
  2. FEXOFENADINE [Suspect]
     Indication: LIP OEDEMA
     Route: 048
     Dates: start: 20130603, end: 20130605
  3. FEXOFENADINE [Suspect]
     Indication: TONGUE OEDEMA
     Route: 048
     Dates: start: 20130603, end: 20130605
  4. AMITRIPTYLINE [Concomitant]
     Indication: PAIN
     Route: 048
  5. METOCLOPRAMIDE [Concomitant]
     Indication: VERTIGO
     Route: 048
  6. NAPROXEN [Concomitant]
     Indication: PAIN
     Route: 048
  7. OMEPRAZOLE [Concomitant]
     Indication: GASTROOESOPHAGEAL REFLUX DISEASE
     Route: 048
  8. PREGABALIN [Concomitant]
     Indication: PAIN
     Route: 048
  9. SOLPADOL [Concomitant]
     Indication: ANALGESIC THERAPY
     Route: 048
     Dates: start: 20130603, end: 20130605

REACTIONS (1)
  - Heart rate increased [Recovered/Resolved]
